FAERS Safety Report 11925095 (Version 1)
Quarter: 2016Q1

REPORT INFORMATION
  Report Type: Spontaneous
  Country: CH (occurrence: CH)
  Receive Date: 20160118
  Receipt Date: 20160118
  Transmission Date: 20160526
  Serious: Yes (Hospitalization)
  Sender: FDA-Public Use
  Company Number: PHHY2016CH004714

PATIENT
  Age: 66 Year
  Sex: Male

DRUGS (2)
  1. ACEMETACIN [Concomitant]
     Active Substance: ACEMETACIN
     Indication: OSTEOARTHRITIS
     Dosage: UNK
     Route: 048
     Dates: end: 201510
  2. VOLTAREN [Suspect]
     Active Substance: DICLOFENAC SODIUM
     Indication: OSTEOARTHRITIS
     Dosage: UNK
     Route: 048
     Dates: end: 201510

REACTIONS (2)
  - Cutaneous vasculitis [Recovering/Resolving]
  - Skin test positive [Recovered/Resolved]

NARRATIVE: CASE EVENT DATE: 201510
